FAERS Safety Report 7226398-7 (Version None)
Quarter: 2011Q1

REPORT INFORMATION
  Report Type: 
  Country: None (occurrence: None)
  Receive Date: 20110114
  Receipt Date: 20110111
  Transmission Date: 20110831
  Serious: Yes (Hospitalization)
  Sender: FDA-Public Use
  Company Number: CHPA2010DE19606

PATIENT
  Sex: Female
  Weight: 51 kg

DRUGS (1)
  1. NICOTINELL TTS 30 [Suspect]
     Indication: SMOKING CESSATION THERAPY
     Dosage: 21 MG, QD
     Route: 062
     Dates: start: 20101219, end: 20101220

REACTIONS (4)
  - HAEMORRHAGE [None]
  - DYSPHAGIA [None]
  - FEELING COLD [None]
  - FEELING HOT [None]
